FAERS Safety Report 9218828 (Version 1)
Quarter: 2013Q1

REPORT INFORMATION
  Report Type: Spontaneous
  Country: US (occurrence: None)
  Receive Date: 20120827
  Receipt Date: 20120827
  Transmission Date: 20140127
  Serious: No
  Sender: FDA-Public Use
  Company Number: 353648

PATIENT
  Age: 71 Year
  Sex: Female

DRUGS (3)
  1. VICTOZA (LIRAGLUTIDE) SOLUTION FOR INJECTION, 6MG/ML [Suspect]
     Indication: DIABETES MELLITUS
     Route: 058
  2. NOVOLOG FLEXPEN (INSULIN ASPART) SOLUTION FOR INJECTION, 100 U/ML [Suspect]
     Indication: DIABETES MELLITUS
     Dosage: 22 U
     Route: 058
  3. LANTUS (INSULIN GLARGINE) [Concomitant]

REACTIONS (1)
  - Blood glucose increased [None]
